FAERS Safety Report 13734945 (Version 1)
Quarter: 2017Q3

REPORT INFORMATION
  Report Type: Spontaneous
  Country: US (occurrence: US)
  Receive Date: 20170710
  Receipt Date: 20170710
  Transmission Date: 20171127
  Serious: No
  Sender: FDA-Public Use
  Company Number: US-BIOGEN-2017BI00426616

PATIENT
  Sex: Female

DRUGS (1)
  1. TYSABRI [Suspect]
     Active Substance: NATALIZUMAB
     Indication: MULTIPLE SCLEROSIS
     Route: 065
     Dates: start: 20170627

REACTIONS (6)
  - Fatigue [Unknown]
  - Nausea [Recovered/Resolved]
  - Poor quality sleep [Unknown]
  - Oral discomfort [Unknown]
  - Pruritus generalised [Recovered/Resolved]
  - Urticaria [Recovered/Resolved]
